FAERS Safety Report 10144848 (Version 1)
Quarter: 2014Q2

REPORT INFORMATION
  Report Type: Spontaneous
  Country: US (occurrence: US)
  Receive Date: 20140430
  Receipt Date: 20140430
  Transmission Date: 20141212
  Serious: No
  Sender: FDA-Public Use
  Company Number: US-SA-2014SA013280

PATIENT
  Sex: 0

DRUGS (1)
  1. ENOXAPARIN SODIUM - WINTHROP [Suspect]
     Dosage: TAKEN FROM-OVER A YEAR
     Route: 065

REACTIONS (3)
  - Fatigue [Unknown]
  - Gastrointestinal disorder [Unknown]
  - Diarrhoea [Unknown]
